FAERS Safety Report 7809135-4 (Version None)
Quarter: 2011Q4

REPORT INFORMATION
  Report Type: 
  Country: None (occurrence: None)
  Receive Date: 20111012
  Receipt Date: 20111004
  Transmission Date: 20120403
  Serious: Yes (Disabling, Other)
  Sender: FDA-Public Use
  Company Number: JP-JNJFOC-20110410049

PATIENT
  Sex: Male

DRUGS (13)
  1. PHENYTOIN [Concomitant]
     Indication: PRODUCT USED FOR UNKNOWN INDICATION
     Route: 048
     Dates: start: 20110411
  2. THIOPENTAL SODIUM [Concomitant]
     Indication: PRODUCT USED FOR UNKNOWN INDICATION
     Route: 065
     Dates: start: 20110409
  3. LUPIAL [Concomitant]
     Indication: PRODUCT USED FOR UNKNOWN INDICATION
     Route: 054
     Dates: start: 20110404, end: 20110407
  4. TOPIRAMATE [Suspect]
     Indication: EPILEPSY
     Route: 048
     Dates: start: 20110418
  5. PHENOBARBITAL TAB [Suspect]
     Indication: CONVULSION
     Route: 048
     Dates: start: 20110411
  6. VALPROIC ACID [Concomitant]
     Route: 048
     Dates: start: 20110415, end: 20110415
  7. TOPIRAMATE [Suspect]
     Route: 048
     Dates: start: 20110412, end: 20110417
  8. VALPROIC ACID [Concomitant]
     Indication: PRODUCT USED FOR UNKNOWN INDICATION
     Route: 048
     Dates: start: 20110411, end: 20110414
  9. TOPIRAMATE [Suspect]
     Route: 048
     Dates: start: 20110412, end: 20110417
  10. PHENOBARBITAL TAB [Suspect]
     Route: 048
     Dates: start: 20110407, end: 20110410
  11. MIDAZOLAM HCL [Suspect]
     Dates: start: 20110405
  12. TOPIRAMATE [Suspect]
     Indication: CONVULSION
     Route: 048
     Dates: start: 20110418
  13. MIDAZOLAM HCL [Suspect]
     Indication: CONVULSION
     Dates: start: 20110404, end: 20110404

REACTIONS (2)
  - DRUG RASH WITH EOSINOPHILIA AND SYSTEMIC SYMPTOMS [None]
  - RHABDOMYOLYSIS [None]
